FAERS Safety Report 20896590 (Version 1)
Quarter: 2022Q2

REPORT INFORMATION
  Report Type: Spontaneous
  Country: CA (occurrence: None)
  Receive Date: 20220531
  Receipt Date: 20220531
  Transmission Date: 20220720
  Serious: Yes (Other)
  Sender: FDA-Public Use
  Company Number: CA-ROCHE-3100848

PATIENT
  Sex: Female

DRUGS (5)
  1. OBINUTUZUMAB [Suspect]
     Active Substance: OBINUTUZUMAB
     Indication: Follicular lymphoma
     Dosage: 3RD LINE SYSTEMIC TREATMENT, BENDAMUSTINE-OBINUTUZUMAB, PROGRESSIVE DISEASE
     Route: 042
     Dates: start: 20220124, end: 20220323
  2. BENDAMUSTINE [Suspect]
     Active Substance: BENDAMUSTINE
     Indication: Follicular lymphoma
     Dosage: 3RD LINE SYSTEMIC TREATMENT, BENDAMUSTINE-OBINUTUZUMAB, PROGRESSIVE DISEASE
     Route: 065
     Dates: start: 20220124, end: 20220323
  3. DEXAMETHASONE [Suspect]
     Active Substance: DEXAMETHASONE
     Indication: Follicular lymphoma
     Dosage: 2ND LINE SYSTEMIC TREATMENT, AUTO/ALLO-SCT + CONDITIONING (BEAM) + SALVAGE C(I)T (RGDP FOLLOWED BY A
     Route: 065
     Dates: start: 20210323, end: 20210621
  4. CISPLATIN [Suspect]
     Active Substance: CISPLATIN
     Indication: Follicular lymphoma
     Dosage: 2ND LINE SYSTEMIC TREATMENT, AUTO/ALLO-SCT + CONDITIONING (BEAM) + SALVAGE C(I)T (RGDP FOLLOWED BY A
     Route: 065
     Dates: start: 20210323, end: 20210621
  5. GEMCITABINE [Suspect]
     Active Substance: GEMCITABINE
     Indication: Follicular lymphoma
     Dosage: 2ND LINE SYSTEMIC TREATMENT, AUTO/ALLO-SCT + CONDITIONING (BEAM) + SALVAGE C(I)T (RGDP FOLLOWED BY A
     Route: 065
     Dates: start: 20210323, end: 20210621

REACTIONS (4)
  - Lymphadenopathy [Unknown]
  - Splenomegaly [Unknown]
  - Osteosclerosis [Unknown]
  - COVID-19 [Unknown]
